FAERS Safety Report 12839855 (Version 1)
Quarter: 2016Q4

REPORT INFORMATION
  Report Type: Spontaneous
  Country: CA (occurrence: CA)
  Receive Date: 20161012
  Receipt Date: 20161012
  Transmission Date: 20170207
  Serious: Yes (Death, Hospitalization, Other)
  Sender: FDA-Public Use
  Company Number: CA-REGENERON PHARMACEUTICALS, INC.-2015-11042

PATIENT

DRUGS (5)
  1. EYLEA [Suspect]
     Active Substance: AFLIBERCEPT
     Dosage: UNK, OD
     Dates: start: 201411, end: 201411
  2. EYLEA [Suspect]
     Active Substance: AFLIBERCEPT
     Indication: AGE-RELATED MACULAR DEGENERATION
     Dosage: UNK, OD
     Dates: start: 20140911, end: 20140911
  3. EYLEA [Suspect]
     Active Substance: AFLIBERCEPT
     Dosage: UNK, OU
     Dates: start: 20150122, end: 20150122
  4. EYLEA [Suspect]
     Active Substance: AFLIBERCEPT
     Dosage: UNK, OS
     Dates: start: 20150225, end: 20150225
  5. EYLEA [Suspect]
     Active Substance: AFLIBERCEPT
     Dosage: UNK, OD
     Dates: start: 20141008, end: 20141008

REACTIONS (3)
  - Myocardial infarction [Unknown]
  - Renal disorder [Fatal]
  - Cardiac disorder [Fatal]

NARRATIVE: CASE EVENT DATE: 20150319
